FAERS Safety Report 8980206 (Version 1)
Quarter: 2012Q4

REPORT INFORMATION
  Report Type: 
  Country: NL (occurrence: NL)
  Receive Date: 20121221
  Receipt Date: 20121221
  Transmission Date: 20130627
  Serious: Yes (Death)
  Sender: FDA-Public Use
  Company Number: NL-GILEAD-2012-0066836

PATIENT

DRUGS (1)
  1. HEPSERA [Suspect]
     Indication: CHRONIC HEPATITIS B
     Route: 064

REACTIONS (1)
  - Death [Fatal]
